FAERS Safety Report 5105035-1 (Version None)
Quarter: 2006Q3

REPORT INFORMATION
  Report Type: 
  Country: None (occurrence: None)
  Receive Date: 20060911
  Receipt Date: 20060828
  Transmission Date: 20061208
  Serious: Yes (Death, Hospitalization)
  Sender: FDA-Public Use
  Company Number: RENA-11767

PATIENT
  Sex: Female

DRUGS (19)
  1. RENAGEL [Suspect]
     Indication: HYPERPHOSPHATAEMIA
     Dosage: 3.2 G TID PO
     Route: 048
     Dates: start: 20040801
  2. TUMS [Concomitant]
  3. MAGNABIND [Concomitant]
  4. ASPIRIN [Concomitant]
  5. HUMULIN [Concomitant]
  6. FUROSEMIDE [Concomitant]
  7. GEMFIBROZIL [Concomitant]
  8. AVANDIA [Concomitant]
  9. REGLAN [Concomitant]
  10. ESTRADIOL INJ [Concomitant]
  11. COLCHICINE [Concomitant]
  12. LISINOPRIL [Concomitant]
  13. SENSIPAR [Concomitant]
  14. PATANOL [Concomitant]
  15. COMBIVENT [Concomitant]
  16. FOLIC ACID [Concomitant]
  17. VITAMIN B-12 [Concomitant]
  18. PROPRANOLOL [Concomitant]
  19. ELAVIL [Concomitant]

REACTIONS (4)
  - CALCIPHYLAXIS [None]
  - DIVERTICULITIS [None]
  - IMPAIRED HEALING [None]
  - INTESTINAL PERFORATION [None]
